FAERS Safety Report 9615936 (Version 2)
Quarter: 2014Q3

REPORT INFORMATION
  Report Type: Spontaneous
  Country: US (occurrence: US)
  Receive Date: 20131011
  Receipt Date: 20140710
  Transmission Date: 20150326
  Serious: No
  Sender: FDA-Public Use
  Company Number: US-PURDUE-USA-2013-0098785

PATIENT
  Age: 50 Year
  Sex: Female

DRUGS (1)
  1. BUTRANS [Suspect]
     Active Substance: BUPRENORPHINE
     Indication: PRODUCT USED FOR UNKNOWN INDICATION
     Dosage: 5 MCG, UNK
     Route: 062

REACTIONS (4)
  - Inadequate analgesia [Unknown]
  - Drug ineffective [Unknown]
  - Product adhesion issue [Unknown]
  - Nausea [Unknown]
